FAERS Safety Report 25984528 (Version 3)
Quarter: 2025Q4

REPORT INFORMATION
  Report Type: Spontaneous
  Country: US (occurrence: US)
  Receive Date: 20251031
  Receipt Date: 20251209
  Transmission Date: 20260118
  Serious: No
  Sender: MYLAN
  Company Number: US-MYLANLABS-2025M1090989

PATIENT
  Age: 88 Year
  Sex: Female
  Weight: 56.7 kg

DRUGS (1)
  1. LATANOPROST [Suspect]
     Active Substance: LATANOPROST
     Indication: Glaucoma
     Dosage: 1 GTT DROPS, PM (ONE DROP IN BOTH EYES AT NIGHT)
     Dates: start: 20250901

REACTIONS (2)
  - Eye irritation [Unknown]
  - Product packaging quantity issue [Unknown]

NARRATIVE: CASE EVENT DATE: 20250901
